FAERS Safety Report 9101563 (Version 2)
Quarter: 2013Q1

REPORT INFORMATION
  Report Type: Spontaneous
  Country: FR (occurrence: FR)
  Receive Date: 20130218
  Receipt Date: 20130305
  Transmission Date: 20140127
  Serious: Yes (Hospitalization)
  Sender: FDA-Public Use
  Company Number: FR-JNJFOC-20130203338

PATIENT
  Age: 64 Year
  Sex: Female

DRUGS (6)
  1. XARELTO [Suspect]
     Indication: PRODUCT USED FOR UNKNOWN INDICATION
     Route: 048
     Dates: start: 20121128, end: 20121210
  2. LEVOTHYROX [Concomitant]
     Dosage: 125
     Route: 048
  3. MYOLASTAN [Concomitant]
     Route: 048
  4. PROZAC [Concomitant]
     Route: 048
  5. INIPOMP [Concomitant]
     Route: 048
     Dates: start: 20121128
  6. LAMALINE [Concomitant]
     Route: 048

REACTIONS (2)
  - Venous thrombosis [Recovered/Resolved]
  - Drug ineffective [Recovered/Resolved]
